FAERS Safety Report 4732926-3 (Version None)
Quarter: 2005Q3

REPORT INFORMATION
  Report Type: 
  Country: None (occurrence: None)
  Receive Date: 20050803
  Receipt Date: 20050526
  Transmission Date: 20060218
  Serious: No
  Sender: FDA-Public Use
  Company Number: US-GLAXOSMITHKLINE-A0560274A

PATIENT
  Sex: Female

DRUGS (1)
  1. AVANDAMET [Suspect]
     Dosage: 1000MG TWICE PER DAY
     Route: 048

REACTIONS (2)
  - DYSPNOEA [None]
  - SOMNOLENCE [None]
